FAERS Safety Report 24172014 (Version 3)
Quarter: 2024Q4

REPORT INFORMATION
  Report Type: Report from Study
  Country: US (occurrence: US)
  Receive Date: 20240805
  Receipt Date: 20241029
  Transmission Date: 20250115
  Serious: Yes (Other)
  Sender: UCB
  Company Number: US-UCBSA-2024038803

PATIENT
  Sex: Female
  Weight: 45 kg

DRUGS (18)
  1. ROZANOLIXIZUMAB [Suspect]
     Active Substance: ROZANOLIXIZUMAB
     Indication: Myasthenia gravis
     Dosage: UNK
     Route: 058
     Dates: start: 202402
  2. ROZANOLIXIZUMAB [Suspect]
     Active Substance: ROZANOLIXIZUMAB
     Dosage: 420 MILLIGRAM (3ML), WEEKLY (QW) (CYCLE 2)
     Route: 058
     Dates: start: 20240614
  3. ROZANOLIXIZUMAB [Suspect]
     Active Substance: ROZANOLIXIZUMAB
     Dosage: 420 MILLIGRAM (3ML), WEEKLY (QW)
     Route: 058
     Dates: start: 20240920
  4. HUMAN IMMUNOGLOBULIN G [Concomitant]
     Active Substance: HUMAN IMMUNOGLOBULIN G
     Indication: Product used for unknown indication
     Dosage: UNK
     Route: 058
     Dates: start: 202401
  5. MESTINON [Concomitant]
     Active Substance: PYRIDOSTIGMINE BROMIDE
     Indication: Product used for unknown indication
     Dosage: 60 MILLIGRAM, 3X/DAY (TID)
     Route: 048
  6. PREDNISONE [Concomitant]
     Active Substance: PREDNISONE
     Indication: Product used for unknown indication
     Dosage: 10-20 MG DAILY, ONE (1) TAB(S) BY MOUUTH 2XDAILY
     Route: 048
  7. QULIPTA [Concomitant]
     Active Substance: ATOGEPANT
     Indication: Migraine prophylaxis
     Dosage: 60 MILLIGRAM, ONCE DAILY (QD)
     Route: 048
  8. TOPAMAX [Concomitant]
     Active Substance: TOPIRAMATE
     Indication: Migraine
     Dosage: UNK
  9. NURTEC ODT [Concomitant]
     Active Substance: RIMEGEPANT SULFATE
     Indication: Migraine
     Dosage: 75 MILLIGRAM
     Route: 048
  10. NURTEC ODT [Concomitant]
     Active Substance: RIMEGEPANT SULFATE
     Indication: Breakthrough pain
  11. EPINEPHRINESNAP V [Concomitant]
     Indication: Product used for unknown indication
     Dosage: 1 MG/ML INJECTABLE KIT 1 MG
     Route: 030
  12. GAMUNEX-C [Concomitant]
     Active Substance: HUMAN IMMUNOGLOBULIN G
     Indication: Product used for unknown indication
     Dosage: 10% INJECTABLE SOLUTION, LOADING DOSE OVER 3 DAYS, 90 G
     Route: 042
  13. GAMUNEX-C [Concomitant]
     Active Substance: HUMAN IMMUNOGLOBULIN G
     Dosage: 10% INJECTABLE SOLUTION, LOADING DOSE OVER 3 DAYS, 40 G
     Route: 042
  14. MESTINON [Concomitant]
     Active Substance: PYRIDOSTIGMINE BROMIDE
     Indication: Product used for unknown indication
     Dosage: 60 MG/5 ML ORAL SYRUP: 12 MG=1ML, 3XDAILY. 90 ML
     Route: 048
  15. TOPIRAMATE [Concomitant]
     Active Substance: TOPIRAMATE
     Indication: Migraine
     Dosage: 200 MILLIGRAM ORAL CAPSULE. EXTENDED RELEASE 2 CAP(S). PO 1XDAILY HS
     Route: 048
  16. TOPIRAMATE [Concomitant]
     Active Substance: TOPIRAMATE
     Indication: Focal dyscognitive seizures
  17. BIOFREEZE [Concomitant]
     Active Substance: MENTHOL
     Indication: Pain
     Dosage: 0.2%-3.5% TOPICAL GEL 1 APP. TOP, 1XDAILY, PRN: AS NEEDED
     Route: 061
  18. ALENDRONATE [Concomitant]
     Active Substance: ALENDRONATE SODIUM
     Indication: Product used for unknown indication
     Dosage: 70 MILLIGRAM
     Route: 048

REACTIONS (3)
  - Hypotension [Unknown]
  - Leukaemia [Not Recovered/Not Resolved]
  - Lymphadenopathy [Recovering/Resolving]

NARRATIVE: CASE EVENT DATE: 20240101
